FAERS Safety Report 15468282 (Version 1)
Quarter: 2018Q4

REPORT INFORMATION
  Report Type: Spontaneous
  Country: ES (occurrence: ES)
  Receive Date: 20181005
  Receipt Date: 20181005
  Transmission Date: 20190204
  Serious: Yes (Hospitalization)
  Sender: FDA-Public Use
  Company Number: ES-ROCHE-2195015

PATIENT
  Age: 12 Year
  Sex: Female

DRUGS (4)
  1. VORICONAZOL [Concomitant]
     Active Substance: VORICONAZOLE
     Dosage: 40MG/ML: 6 ML CADA 12H
     Route: 048
     Dates: start: 20170430
  2. SEPTRIN [Concomitant]
     Active Substance: SULFAMETHOXAZOLE\TRIMETHOPRIM
     Dosage: 200/40MG/5ML: 9 ML L X V
     Route: 048
     Dates: start: 20170430
  3. CELLCEPT [Suspect]
     Active Substance: MYCOPHENOLATE MOFETIL\MYCOPHENOLATE MOFETIL HYDROCHLORIDE
     Indication: PRODUCT USED FOR UNKNOWN INDICATION
     Dosage: ON 03/SEP/2017, SHE RECEIVED MOST RECENT DOSE OF MYCOPHENOLATE MOFETIL
     Route: 048
     Dates: start: 20170430
  4. ENTOCORD [Concomitant]
     Active Substance: BUDESONIDE
     Dosage: 3 MG CADA 8 HORAS
     Route: 048
     Dates: start: 20170430

REACTIONS (1)
  - Posterior reversible encephalopathy syndrome [Recovered/Resolved]

NARRATIVE: CASE EVENT DATE: 20170903
